FAERS Safety Report 6456691-7 (Version None)
Quarter: 2009Q4

REPORT INFORMATION
  Report Type: 
  Country: None (occurrence: None)
  Receive Date: 20091125
  Receipt Date: 20091116
  Transmission Date: 20100525
  Serious: Yes (Hospitalization, Other)
  Sender: FDA-Public Use
  Company Number: US-BAYER-200712304BCC

PATIENT
  Age: 56 Year
  Sex: Male
  Weight: 79 kg

DRUGS (7)
  1. ASPIRIN [Suspect]
     Indication: CORONARY ARTERY DISEASE
     Route: 065
  2. SUNITINIB MALATE [Suspect]
     Indication: ADENOCARCINOMA PANCREAS
     Route: 048
     Dates: start: 20070625
  3. SUNITINIB MALATE [Suspect]
     Route: 048
     Dates: start: 20070424
  4. SUNITINIB MALATE [Suspect]
     Route: 048
     Dates: end: 20070617
  5. MULTI-VITAMINS [Concomitant]
  6. PLAVIX [Concomitant]
     Indication: CORONARY ARTERY DISEASE
  7. VYTORIN [Concomitant]

REACTIONS (4)
  - ABDOMINAL PAIN [None]
  - FREQUENT BOWEL MOVEMENTS [None]
  - HAEMATOCHEZIA [None]
  - LOWER GASTROINTESTINAL HAEMORRHAGE [None]
